FAERS Safety Report 8884362 (Version 2)
Quarter: 2012Q4

REPORT INFORMATION
  Report Type: Report from Study
  Country: DE (occurrence: DE)
  Receive Date: 20121104
  Receipt Date: 20121214
  Transmission Date: 20130627
  Serious: Yes (Other)
  Sender: FDA-Public Use
  Company Number: PHHY2012DE098871

PATIENT
  Sex: Female

DRUGS (2)
  1. FTY 720 [Suspect]
     Dosage: 0.5 mg, QD
     Route: 048
     Dates: start: 20110512
  2. DETRUSITOL [Concomitant]
     Dosage: 2 mg, UNK
     Dates: start: 20070101

REACTIONS (2)
  - Thyroid neoplasm [Not Recovered/Not Resolved]
  - Intervertebral disc protrusion [Recovered/Resolved]
